FAERS Safety Report 6233487-2 (Version None)
Quarter: 2009Q2

REPORT INFORMATION
  Report Type: 
  Country: None (occurrence: None)
  Receive Date: 20090617
  Receipt Date: 20090615
  Transmission Date: 20091009
  Serious: Yes (Death, Other)
  Sender: FDA-Public Use
  Company Number: PHEH2008US09962

PATIENT
  Sex: Female

DRUGS (1)
  1. ZOMETA [Suspect]

REACTIONS (10)
  - ANXIETY [None]
  - ARTHRALGIA [None]
  - BRONCHITIS [None]
  - DEATH [None]
  - DECREASED INTEREST [None]
  - GENERAL PHYSICAL HEALTH DETERIORATION [None]
  - JOINT SWELLING [None]
  - OSTEONECROSIS [None]
  - PAIN [None]
  - UPPER RESPIRATORY TRACT INFECTION [None]
